FAERS Safety Report 8837673 (Version 1)
Quarter: 2012Q4

REPORT INFORMATION
  Report Type: 
  Country: BR (occurrence: BR)
  Receive Date: 20121012
  Receipt Date: 20121012
  Transmission Date: 20130627
  Serious: Yes (Hospitalization, Other)
  Sender: FDA-Public Use
  Company Number: PHHY2012BR089756

PATIENT
  Sex: Female

DRUGS (1)
  1. DIOVAN HCT [Suspect]
     Indication: CEREBROVASCULAR ACCIDENT
     Dosage: 1 DF (320 mg vals and 12.5 mg hydro), in the morning

REACTIONS (1)
  - Cerebrovascular accident [Recovering/Resolving]
